FAERS Safety Report 21835167 (Version 1)
Quarter: 2023Q1

REPORT INFORMATION
  Report Type: Report from Study
  Country: US (occurrence: US)
  Receive Date: 20230109
  Receipt Date: 20230109
  Transmission Date: 20230417
  Serious: Yes (Other)
  Sender: FDA-Public Use
  Company Number: US-ABBVIE-4260159

PATIENT
  Age: 65 Year
  Sex: Female

DRUGS (1)
  1. SKYRIZI [Suspect]
     Active Substance: RISANKIZUMAB-RZAA
     Indication: Psoriasis
     Dosage: COLD TURNED INTO PNEUMONIA WITH CODE COLD AND PNEUMONIA WAS RECOVERED IN DEC 2022
     Route: 058
     Dates: start: 20200410

REACTIONS (6)
  - Deafness unilateral [Not Recovered/Not Resolved]
  - Feeling abnormal [Unknown]
  - Nasopharyngitis [Recovered/Resolved]
  - SARS-CoV-2 test positive [Recovering/Resolving]
  - Middle ear effusion [Not Recovered/Not Resolved]
  - Pneumonia [Recovered/Resolved]

NARRATIVE: CASE EVENT DATE: 20221101
